FAERS Safety Report 10963734 (Version 2)
Quarter: 2015Q2

REPORT INFORMATION
  Report Type: Spontaneous
  Country: US (occurrence: US)
  Receive Date: 20150328
  Receipt Date: 20150423
  Transmission Date: 20150821
  Serious: Yes (Other)
  Sender: FDA-Public Use
  Company Number: US-009507513-1503USA012776

PATIENT
  Age: 83 Year

DRUGS (2)
  1. WARFARIN [Concomitant]
     Active Substance: WARFARIN
  2. TICE BCG [Suspect]
     Active Substance: BACILLUS CALMETTE-GUERIN SUBSTRAIN TICE LIVE ANTIGEN
     Indication: BLADDER CANCER
     Dosage: UNK

REACTIONS (4)
  - Nephrostomy [Unknown]
  - Ureteric cancer [Unknown]
  - Incorrect route of drug administration [Unknown]
  - Anticoagulation drug level abnormal [Unknown]

NARRATIVE: CASE EVENT DATE: 201502
